FAERS Safety Report 22154789 (Version 2)
Quarter: 2023Q2

REPORT INFORMATION
  Report Type: Report from Study
  Country: TH (occurrence: TH)
  Receive Date: 20230330
  Receipt Date: 20230411
  Transmission Date: 20230721
  Serious: Yes (Other)
  Sender: FDA-Public Use
  Company Number: TH-TAKEDA-2023TUS031096

PATIENT
  Age: 60 Year
  Sex: Male
  Weight: 58 kg

DRUGS (4)
  1. MOBOCERTINIB [Suspect]
     Active Substance: MOBOCERTINIB
     Indication: Lung neoplasm malignant
     Dosage: UNK UNK, QD
     Route: 048
     Dates: start: 20221006
  2. MOBOCERTINIB [Suspect]
     Active Substance: MOBOCERTINIB
     Dosage: UNK UNK, QD
     Route: 048
     Dates: end: 20230206
  3. TRINOLONE [Concomitant]
     Indication: Wound
     Dosage: 5 GRAM, QID
     Route: 065
     Dates: start: 20221110, end: 20230109
  4. LORITA [Concomitant]
     Indication: Hypersensitivity
     Dosage: UNK UNK, QD
     Route: 048
     Dates: start: 20221219, end: 20230206

REACTIONS (1)
  - Lung neoplasm malignant [Not Recovered/Not Resolved]

NARRATIVE: CASE EVENT DATE: 20230206
